FAERS Safety Report 10335081 (Version 3)
Quarter: 2015Q1

REPORT INFORMATION
  Report Type: Spontaneous
  Country: US (occurrence: US)
  Receive Date: 20140723
  Receipt Date: 20150119
  Transmission Date: 20150720
  Serious: No
  Sender: FDA-Public Use
  Company Number: US-UNITED THERAPEUTICS-UTC-047727

PATIENT
  Sex: Female
  Weight: 79.82 kg

DRUGS (2)
  1. TYVASO [Suspect]
     Active Substance: TREPROSTINIL
     Indication: PULMONARY ARTERIAL HYPERTENSION
     Dosage: 18-54 MICROGRAMS, QID
     Dates: start: 20140408
  2. LETAIRIS [Concomitant]
     Active Substance: AMBRISENTAN

REACTIONS (9)
  - Cough [Unknown]
  - Nausea [Unknown]
  - Dizziness [Unknown]
  - Chest pain [Unknown]
  - Chest discomfort [Unknown]
  - Oropharyngeal pain [Recovering/Resolving]
  - Headache [Recovering/Resolving]
  - Sinus congestion [Recovering/Resolving]
  - Ear congestion [Recovering/Resolving]

NARRATIVE: CASE EVENT DATE: 2014
